FAERS Safety Report 7808697-0 (Version None)
Quarter: 2011Q4

REPORT INFORMATION
  Report Type: 
  Country: None (occurrence: None)
  Receive Date: 20111006
  Receipt Date: 20111003
  Transmission Date: 20120403
  Serious: Yes (Other)
  Sender: FDA-Public Use
  Company Number: 2011SP033925

PATIENT
  Sex: Female

DRUGS (4)
  1. OILEZZ (DESOGESTREL/ETHINYLESTRADIOL /00570801/) [Suspect]
     Indication: CONTRACEPTION
     Dosage: 1 DF; QD, 1 DF; QD; PO
     Route: 048
     Dates: start: 20110101
  2. OILEZZ (DESOGESTREL/ETHINYLESTRADIOL /00570801/) [Suspect]
     Indication: ACNE
     Dosage: 1 DF; QD, 1 DF; QD; PO
     Route: 048
     Dates: start: 20110101
  3. OILEZZ (DESOGESTREL/ETHINYLESTRADIOL /00570801/) [Suspect]
     Indication: CONTRACEPTION
     Dosage: 1 DF; QD, 1 DF; QD; PO
     Route: 048
     Dates: start: 20110714, end: 20110719
  4. OILEZZ (DESOGESTREL/ETHINYLESTRADIOL /00570801/) [Suspect]
     Indication: ACNE
     Dosage: 1 DF; QD, 1 DF; QD; PO
     Route: 048
     Dates: start: 20110714, end: 20110719

REACTIONS (2)
  - ANGINA PECTORIS [None]
  - HEART RATE INCREASED [None]
